FAERS Safety Report 5592197-5 (Version None)
Quarter: 2008Q1

REPORT INFORMATION
  Report Type: 
  Country: None (occurrence: None)
  Receive Date: 20080115
  Receipt Date: 20071023
  Transmission Date: 20080703
  Serious: Yes (Hospitalization)
  Sender: FDA-Public Use
  Company Number: US-ABBOTT-07P-163-0421782-00

PATIENT
  Sex: Male
  Weight: 109.1 kg

DRUGS (3)
  1. ADVICOR [Suspect]
     Indication: BLOOD TRIGLYCERIDES INCREASED
     Dosage: 500/20MG (TOTAL DAILY DOSE); 500/20 MG DAILY DOSE
     Route: 048
     Dates: start: 20071020
  2. ADVICOR [Suspect]
     Indication: LOW DENSITY LIPOPROTEIN INCREASED
  3. QUINAPRIL HCL [Concomitant]
     Indication: HYPERTENSION

REACTIONS (6)
  - CHEST PAIN [None]
  - DYSPNOEA [None]
  - FLUSHING [None]
  - MIGRAINE [None]
  - PARAESTHESIA [None]
  - PRURITUS [None]
